FAERS Safety Report 9361014 (Version 4)
Quarter: 2013Q3

REPORT INFORMATION
  Report Type: Spontaneous
  Country: JP (occurrence: JP)
  Receive Date: 20130621
  Receipt Date: 20130718
  Transmission Date: 20140515
  Serious: Yes (Other)
  Sender: FDA-Public Use
  Company Number: JP-009507513-1306JPN006546

PATIENT
  Age: 85 Year
  Sex: Female

DRUGS (1)
  1. BONALON [Suspect]
     Indication: OSTEOPOROSIS
     Dosage: DAILY DOSE UNKNOWN
     Route: 048

REACTIONS (1)
  - Femur fracture [Recovering/Resolving]
